FAERS Safety Report 17407427 (Version 2)
Quarter: 2021Q2

REPORT INFORMATION
  Report Type: Other
  Country: CA (occurrence: CA)
  Receive Date: 20200212
  Receipt Date: 20210517
  Transmission Date: 20210716
  Serious: Yes (Disabling, Other)
  Sender: FDA-Public Use
  Company Number: CA-APOTEX-2020AP007295

PATIENT
  Age: 63 Year
  Sex: Male
  Weight: 106.58 kg

DRUGS (1)
  1. APO?AMLODIPINE [Suspect]
     Active Substance: AMLODIPINE BESYLATE
     Indication: HYPERTENSION
     Dosage: 10 MG, QD
     Route: 048

REACTIONS (3)
  - Peripheral swelling [Recovered/Resolved]
  - Product substitution issue [Recovered/Resolved]
  - Vision blurred [Recovered/Resolved]
